FAERS Safety Report 8403381 (Version 2)
Quarter: 2012Q4

REPORT INFORMATION
  Report Type: 
  Country: US (occurrence: US)
  Receive Date: 20120213
  Receipt Date: 20121029
  Transmission Date: 20130627
  Serious: Yes (Other)
  Sender: FDA-Public Use
  Company Number: US-ROCHE-783951

PATIENT
  Age: 16 Year
  Sex: Male
  Weight: 93.52 kg

DRUGS (5)
  1. ACCUTANE [Suspect]
     Indication: ACNE CYSTIC
     Route: 065
     Dates: start: 20020626, end: 200212
  2. ACCUTANE [Suspect]
     Indication: ACNE
     Route: 065
     Dates: start: 20040205, end: 200405
  3. HYDROCORTISONE [Concomitant]
  4. DOXYCYCLINE [Concomitant]
  5. TRIAMCINOLONE [Concomitant]

REACTIONS (11)
  - Inflammatory bowel disease [Unknown]
  - Colitis ulcerative [Unknown]
  - Stress [Unknown]
  - Depression [Unknown]
  - Irritable bowel syndrome [Unknown]
  - Arthralgia [Unknown]
  - Skin irritation [Unknown]
  - Dry skin [Unknown]
  - Skin exfoliation [Unknown]
  - Erythema [Unknown]
  - Hepatic enzyme increased [Unknown]
